FAERS Safety Report 17696983 (Version 1)
Quarter: 2020Q2

REPORT INFORMATION
  Report Type: Spontaneous
  Country: JP (occurrence: JP)
  Receive Date: 20200423
  Receipt Date: 20200423
  Transmission Date: 20200714
  Serious: Yes (Life-Threatening, Hospitalization)
  Sender: FDA-Public Use
  Company Number: JP-TEVA-2020-JP-1224857

PATIENT
  Age: 42 Year
  Sex: Female

DRUGS (5)
  1. PROTHROMBIN COMPLEX CONCENTRATE NOS [Suspect]
     Active Substance: COAGULATION FACTOR IX HUMAN\COAGULATION FACTOR VII HUMAN\COAGULATION FACTOR X HUMAN\PROTHROMBIN
     Indication: PROCOAGULANT THERAPY
     Route: 065
  2. ASPIRIN. [Suspect]
     Active Substance: ASPIRIN
     Indication: ANTIPHOSPHOLIPID SYNDROME
     Dosage: CONTINUED DURING 2ND AND 3RD PREGNANCIES AS WELL
     Route: 065
  3. ASPIRIN. [Suspect]
     Active Substance: ASPIRIN
     Indication: NEPHROPATHY
  4. WARFARIN [Suspect]
     Active Substance: WARFARIN
     Indication: ANTIPHOSPHOLIPID SYNDROME
     Dosage: CONTINUED DURING 3RD PREGNANCY; AND DISCONTINUED MULTIPLE TIMES AND THEN RESTARTED
     Route: 065
  5. WARFARIN [Suspect]
     Active Substance: WARFARIN
     Indication: NEPHROPATHY

REACTIONS (10)
  - Coma [Recovered/Resolved]
  - Menorrhagia [Unknown]
  - Pleural effusion [Recovering/Resolving]
  - Cerebellar haemorrhage [Recovered/Resolved]
  - Cerebral haematoma [Recovered/Resolved]
  - Chronic kidney disease [Recovering/Resolving]
  - Brain stem syndrome [Recovering/Resolving]
  - Hypertension [Recovered/Resolved]
  - Aortic dissection [Recovering/Resolving]
  - Brain compression [Recovering/Resolving]
